FAERS Safety Report 9286409 (Version 1)
Quarter: 2013Q2

REPORT INFORMATION
  Report Type: Spontaneous
  Country: US (occurrence: US)
  Receive Date: 20130513
  Receipt Date: 20130513
  Transmission Date: 20140414
  Serious: Yes (Other)
  Sender: FDA-Public Use
  Company Number: US-BAYER-2013-057256

PATIENT
  Age: 65 Year
  Sex: Female
  Weight: 79 kg

DRUGS (2)
  1. ALEVE LIQUID GELS [Suspect]
     Indication: ARTHRITIS
     Dosage: UNK
     Dates: start: 201304, end: 201304
  2. ALKA-SELTZER PLUS SPARKLING ORIGINAL COLD FORMULA [Suspect]
     Indication: NASOPHARYNGITIS
     Dosage: 2 DF, Q4HR
     Route: 048
     Dates: start: 200804, end: 200804

REACTIONS (2)
  - Drug ineffective [None]
  - Amnesia [None]
